FAERS Safety Report 4367117-1 (Version None)
Quarter: 2004Q2

REPORT INFORMATION
  Report Type: 
  Country: None (occurrence: None)
  Receive Date: 20040528
  Receipt Date: 20040518
  Transmission Date: 20050107
  Serious: Yes (Hospitalization)
  Sender: FDA-Public Use
  Company Number: JNJFOC2004050015

PATIENT
  Age: 68 Year
  Sex: Male
  Weight: 75.7 kg

DRUGS (2)
  1. MELPHALAN [Suspect]
     Indication: MULTIPLE MYELOMA
     Route: 042
  2. PROCRIT [Suspect]
     Route: 058
     Dates: start: 20030821

REACTIONS (5)
  - CYTOMEGALOVIRUS OESOPHAGITIS [None]
  - ESCHERICHIA BACTERAEMIA [None]
  - FEBRILE NEUTROPENIA [None]
  - PERIRECTAL ABSCESS [None]
  - RENAL FAILURE [None]
